FAERS Safety Report 5858208-4 (Version None)
Quarter: 2008Q3

REPORT INFORMATION
  Report Type: 
  Country: None (occurrence: None)
  Receive Date: 20080826
  Receipt Date: 20080822
  Transmission Date: 20090109
  Serious: Yes (Hospitalization)
  Sender: FDA-Public Use
  Company Number: A0731306A

PATIENT
  Age: 66 Year
  Sex: Female
  Weight: 71.8 kg

DRUGS (8)
  1. AVANDIA [Suspect]
     Dosage: 4MG PER DAY
     Route: 048
     Dates: start: 20040101, end: 20070515
  2. PREMARIN [Concomitant]
  3. GLUCOPHAGE [Concomitant]
     Dates: start: 19800101
  4. METFORMIN HCL [Concomitant]
     Dates: start: 19800101
  5. GLUCOTROL [Concomitant]
     Dates: start: 19800101
  6. LIPITOR [Concomitant]
  7. ONE A DAY VITAMIN [Concomitant]
  8. ALLEGRA [Concomitant]

REACTIONS (2)
  - CARDIAC FAILURE CONGESTIVE [None]
  - MYOCARDIAL INFARCTION [None]
